FAERS Safety Report 24334924 (Version 2)
Quarter: 2024Q4

REPORT INFORMATION
  Report Type: Spontaneous
  Country: US (occurrence: US)
  Receive Date: 20240918
  Receipt Date: 20241114
  Transmission Date: 20250115
  Serious: Yes (Hospitalization, Other)
  Sender: JAZZ
  Company Number: US-JAZZ PHARMACEUTICALS-2024-US-015253

PATIENT
  Age: 33 Year
  Sex: Male

DRUGS (3)
  1. XYWAV [Suspect]
     Active Substance: CALCIUM OXYBATE\MAGNESIUM OXYBATE\POTASSIUM OXYBATE\SODIUM OXYBATE
     Indication: Product used for unknown indication
     Dosage: UNK
     Route: 048
  2. ALCOHOL [Suspect]
     Active Substance: ALCOHOL
     Indication: Product used for unknown indication
     Dosage: UNK, INGESTION
  3. ALPRAZOLAM [Suspect]
     Active Substance: ALPRAZOLAM
     Indication: Product used for unknown indication
     Dosage: 10 TAB/PILL/CAPSULE

REACTIONS (7)
  - Suspected suicide attempt [Unknown]
  - Depressed level of consciousness [Recovered/Resolved]
  - Nervous system disorder [Recovered/Resolved]
  - Lethargy [Unknown]
  - Hepatic enzyme increased [Unknown]
  - Dizziness [Unknown]
  - Thinking abnormal [Unknown]
